FAERS Safety Report 6999096-2 (Version None)
Quarter: 2010Q3

REPORT INFORMATION
  Report Type: 
  Country: None (occurrence: None)
  Receive Date: 20100920
  Receipt Date: 20100223
  Transmission Date: 20110219
  Serious: No
  Sender: FDA-Public Use
  Company Number: US-ASTRAZENECA-2009UW20448

PATIENT
  Age: 478 Month
  Sex: Female
  Weight: 95.3 kg

DRUGS (6)
  1. SEROQUEL [Suspect]
     Indication: SLEEP DISORDER
     Dosage: SAMPLES ONLY
     Route: 048
     Dates: start: 20050101, end: 20070901
  2. CELEXA [Concomitant]
     Indication: DEPRESSION
     Dates: start: 20040101
  3. METFORMIN [Concomitant]
     Indication: TYPE 2 DIABETES MELLITUS
     Dates: start: 20070901
  4. LIPITOR [Concomitant]
     Indication: BLOOD CHOLESTEROL INCREASED
     Dates: start: 20080101
  5. LIPITOR [Concomitant]
     Indication: HYPERLIPIDAEMIA
     Dates: start: 20080101
  6. ZYPREXA [Concomitant]

REACTIONS (6)
  - ASTHMA [None]
  - BREAST DISORDER [None]
  - DIABETES MELLITUS [None]
  - EPSTEIN-BARR VIRUS INFECTION [None]
  - HYPERTENSION [None]
  - TYPE 2 DIABETES MELLITUS [None]
